FAERS Safety Report 7374688-X (Version None)
Quarter: 2011Q1

REPORT INFORMATION
  Report Type: 
  Country: None (occurrence: None)
  Receive Date: 20110325
  Receipt Date: 20100721
  Transmission Date: 20110831
  Serious: No
  Sender: FDA-Public Use
  Company Number: US-MYLANLABS-2010S1013299

PATIENT
  Age: 38 Year
  Sex: Male

DRUGS (2)
  1. FENTANYL-100 [Suspect]
     Indication: PAIN
     Dosage: QOD
     Route: 062
     Dates: start: 20080101
  2. FENTANYL-100 [Suspect]
     Dosage: CHANGED Q48H
     Route: 062
     Dates: start: 20080101

REACTIONS (2)
  - APPLICATION SITE PUSTULES [None]
  - APPLICATION SITE ERYTHEMA [None]
